FAERS Safety Report 18037474 (Version 1)
Quarter: 2020Q3

REPORT INFORMATION
  Report Type: Report from Study
  Country: CA (occurrence: CA)
  Receive Date: 20200717
  Receipt Date: 20200717
  Transmission Date: 20201104
  Serious: Yes (Death)
  Sender: FDA-Public Use
  Company Number: CA-PFIZER INC-2020273523

PATIENT
  Sex: Female

DRUGS (3)
  1. CARBOPLATIN. [Suspect]
     Active Substance: CARBOPLATIN
     Indication: OVARIAN CANCER
     Dosage: UNK, CYCLIC (AUC5) ON DAY 1
     Route: 042
  2. PACLITAXEL. [Suspect]
     Active Substance: PACLITAXEL
     Indication: OVARIAN CANCER
     Dosage: 175 MG/M2, CYCLIC, ON DAY 1
     Route: 042
  3. ADAVOSERTIB. [Suspect]
     Active Substance: ADAVOSERTIB
     Indication: OVARIAN CANCER
     Dosage: 225 MG, 2X/DAY (2.5 DAYS/21?DAY CYCLE (FIVE DOSES ACROSS DAYS 1, 2, AND MORNING OF DAY 3)
     Route: 048

REACTIONS (1)
  - Neutropenia [Fatal]
